FAERS Safety Report 4330151-1 (Version None)
Quarter: 2004Q1

REPORT INFORMATION
  Report Type: 
  Country: None (occurrence: None)
  Receive Date: 20040329
  Receipt Date: 20040317
  Transmission Date: 20041129
  Serious: Yes (Death)
  Sender: FDA-Public Use
  Company Number: US-JNJFOC-20040104378

PATIENT
  Age: 67 Year
  Sex: Female
  Weight: 67.586 kg

DRUGS (2)
  1. DURAGESIC [Suspect]
     Indication: PAIN
     Dosage: 250 UG/HR, 1 IN 72 HOUR, TRANSDERMAL
     Route: 062
     Dates: start: 20030101, end: 20040119
  2. DILAUDID [Concomitant]

REACTIONS (1)
  - DEATH [None]
